FAERS Safety Report 11926605 (Version 3)
Quarter: 2016Q2

REPORT INFORMATION
  Report Type: Spontaneous
  Country: JP (occurrence: JP)
  Receive Date: 20160119
  Receipt Date: 20160414
  Transmission Date: 20160815
  Serious: Yes (Death, Life-Threatening, Hospitalization)
  Sender: FDA-Public Use
  Company Number: JP-ROCHE-1696775

PATIENT
  Age: 45 Year
  Sex: Female
  Weight: 63 kg

DRUGS (11)
  1. AVASTIN [Suspect]
     Active Substance: BEVACIZUMAB
     Dosage: DOSAGE IS UNCERTAIN?MOST RECENT DOSE ON 28/DEC/2015
     Route: 041
     Dates: start: 20151127, end: 20151228
  2. DOXIL [Suspect]
     Active Substance: DOXORUBICIN HYDROCHLORIDE
     Indication: OVARIAN CANCER
     Route: 065
     Dates: start: 20131218, end: 20140212
  3. PACLITAXEL. [Suspect]
     Active Substance: PACLITAXEL
     Indication: OVARIAN CANCER
     Route: 042
     Dates: start: 20140319, end: 20140820
  4. METHYCOOL [Concomitant]
     Active Substance: METHYLCOBALAMIN
     Indication: NEUROPATHY PERIPHERAL
     Route: 048
     Dates: start: 20140903
  5. AVASTIN [Suspect]
     Active Substance: BEVACIZUMAB
     Indication: OVARIAN CANCER
     Route: 041
     Dates: start: 20140903, end: 20141015
  6. GEMCITABINE HYDROCHLORIDE. [Suspect]
     Active Substance: GEMCITABINE HYDROCHLORIDE
     Indication: OVARIAN CANCER
     Dosage: COMPLETED TREATMENT CYCLE 7
     Route: 042
     Dates: start: 20150416, end: 20150416
  7. PACLITAXEL. [Suspect]
     Active Substance: PACLITAXEL
     Route: 042
     Dates: start: 20140903, end: 20141015
  8. PACLITAXEL. [Suspect]
     Active Substance: PACLITAXEL
     Dosage: COMPLETED TREATMENT CYCLE 7
     Route: 042
     Dates: start: 20150106, end: 20150326
  9. AVASTIN [Suspect]
     Active Substance: BEVACIZUMAB
     Indication: OVARIAN CANCER
     Dosage: COMPLETED TREATMENT CYCLE 12
     Route: 041
     Dates: start: 20141202, end: 20150630
  10. HYCAMTIN [Suspect]
     Active Substance: TOPOTECAN HYDROCHLORIDE
     Indication: OVARIAN CANCER
     Dosage: FIVE TIMES/FOUR WEEKS; COMPLETED TREATMENT CYCLE 7
     Route: 042
     Dates: start: 20150511, end: 20150515
  11. DOCETAXEL. [Suspect]
     Active Substance: DOCETAXEL
     Indication: OVARIAN CANCER
     Dosage: COMPLETED TREATMENT CYCLE 7
     Route: 042
     Dates: start: 20150609, end: 20150630

REACTIONS (3)
  - Ovarian cancer [Fatal]
  - Cardiac failure [Recovered/Resolved]
  - Interstitial lung disease [Not Recovered/Not Resolved]

NARRATIVE: CASE EVENT DATE: 20141024
